FAERS Safety Report 5756909-X (Version None)
Quarter: 2008Q2

REPORT INFORMATION
  Report Type: 
  Country: None (occurrence: None)
  Receive Date: 20080529
  Receipt Date: 20080520
  Transmission Date: 20081010
  Serious: Yes (Death, Hospitalization, Other)
  Sender: FDA-Public Use
  Company Number: 163-21880-08020639

PATIENT
  Age: 55 Year
  Sex: Female

DRUGS (6)
  1. REVLIMID [Suspect]
     Indication: MULTIPLE MYELOMA
     Dosage: 15 MG, DAILY X21 DAYS, ORAL
     Route: 048
     Dates: start: 20070927, end: 20071203
  2. VELCADE [Concomitant]
  3. DOXIL [Concomitant]
  4. PROTONIX [Concomitant]
  5. MARINOL [Concomitant]
  6. OXYCONTIN [Concomitant]

REACTIONS (6)
  - DIALYSIS [None]
  - LEUKAEMIA PLASMACYTIC [None]
  - MALIGNANT NEOPLASM PROGRESSION [None]
  - MULTIPLE MYELOMA [None]
  - PNEUMONIA [None]
  - RENAL FAILURE CHRONIC [None]
